FAERS Safety Report 9978725 (Version 1)
Quarter: 2014Q1

REPORT INFORMATION
  Report Type: Report from Study
  Country: US (occurrence: US)
  Receive Date: 20140306
  Receipt Date: 20140306
  Transmission Date: 20141002
  Serious: No
  Sender: FDA-Public Use
  Company Number: US-ABBVIE-13P-163-1168820-00

PATIENT
  Sex: Female

DRUGS (11)
  1. HUMIRA [Suspect]
     Indication: GRANULOMA
     Dates: start: 20130801
  2. FOLIC ACID [Concomitant]
     Indication: PRODUCT USED FOR UNKNOWN INDICATION
  3. METHOTREXATE [Concomitant]
     Indication: PRODUCT USED FOR UNKNOWN INDICATION
  4. PROTOPIC [Concomitant]
     Indication: PRODUCT USED FOR UNKNOWN INDICATION
  5. TRIAMTERENE [Concomitant]
     Indication: DIURETIC THERAPY
     Dosage: DAILY
  6. AMLODIPINE [Concomitant]
     Indication: HYPERTENSION
  7. ATORVASTATIN [Concomitant]
     Indication: BLOOD CHOLESTEROL INCREASED
  8. SERTRALINE [Concomitant]
     Indication: EMOTIONAL DISORDER
     Dosage: DAILY
  9. ALLEGRA [Concomitant]
     Indication: GRANULOMA
     Dates: start: 20131101
  10. ZYRTEC [Concomitant]
     Indication: GRANULOMA
     Dates: start: 20131101
  11. ORACEA [Concomitant]
     Indication: GRANULOMA
     Dates: start: 201310

REACTIONS (2)
  - Hypertension [Recovered/Resolved]
  - Drug ineffective [Not Recovered/Not Resolved]
